FAERS Safety Report 8146189-2 (Version None)
Quarter: 2012Q1

REPORT INFORMATION
  Report Type: 
  Country: None (occurrence: None)
  Receive Date: 20120217
  Receipt Date: 20110323
  Transmission Date: 20120608
  Serious: No
  Sender: FDA-Public Use
  Company Number: US-ABBOTT-11P-163-0713755-00

PATIENT
  Sex: Male
  Weight: 95.34 kg

DRUGS (5)
  1. SIMCOR [Suspect]
     Dosage: 1000/40MG AT BEDTIME
     Dates: end: 20110322
  2. ASPIRIN [Concomitant]
     Indication: PRODUCT USED FOR UNKNOWN INDICATION
  3. BENICAR HCT [Concomitant]
     Indication: PRODUCT USED FOR UNKNOWN INDICATION
  4. PROPRANOLOL [Concomitant]
     Indication: PRODUCT USED FOR UNKNOWN INDICATION
  5. SIMCOR [Suspect]
     Indication: BLOOD TRIGLYCERIDES INCREASED
     Dosage: 1000/40MG AT BEDTIME

REACTIONS (4)
  - BLOOD TRIGLYCERIDES INCREASED [None]
  - HIGH DENSITY LIPOPROTEIN DECREASED [None]
  - DRUG INEFFECTIVE [None]
  - BLOOD CHOLESTEROL INCREASED [None]
